FAERS Safety Report 16712622 (Version 1)
Quarter: 2019Q3

REPORT INFORMATION
  Report Type: Spontaneous
  Country: IN (occurrence: IN)
  Receive Date: 20190816
  Receipt Date: 20190816
  Transmission Date: 20191004
  Serious: Yes (Other)
  Sender: FDA-Public Use
  Company Number: PHHY2019IN185014

PATIENT
  Age: 12 Day
  Sex: Female

DRUGS (2)
  1. OLMESARTAN [Suspect]
     Active Substance: OLMESARTAN
     Indication: FOETAL EXPOSURE DURING PREGNANCY
     Dosage: MOTHER DOSE: 20 MG, UNK
     Route: 064
  2. HYDROCHLOROTHIAZIDE. [Suspect]
     Active Substance: HYDROCHLOROTHIAZIDE
     Indication: FOETAL EXPOSURE DURING PREGNANCY
     Dosage: MOTHER DOSE: 12.5 MG, UKN
     Route: 064

REACTIONS (7)
  - Foetal exposure during pregnancy [Unknown]
  - Metabolic acidosis [Unknown]
  - Kidney enlargement [Unknown]
  - Renal failure [Unknown]
  - Low birth weight baby [Unknown]
  - Premature baby [Unknown]
  - Pulmonary haemorrhage [Unknown]
